FAERS Safety Report 5549247-1 (Version None)
Quarter: 2007Q4

REPORT INFORMATION
  Report Type: 
  Country: None (occurrence: None)
  Receive Date: 20071210
  Receipt Date: 20071128
  Transmission Date: 20080405
  Serious: Yes (Hospitalization)
  Sender: FDA-Public Use
  Company Number: 2007BI011244

PATIENT
  Age: 62 Year
  Sex: Female
  Weight: 47.6277 kg

DRUGS (13)
  1. AVONEX [Suspect]
     Indication: MULTIPLE SCLEROSIS
     Dosage: 30 UG;QW;IM
     Route: 030
     Dates: start: 20070521, end: 20070521
  2. DETROL [Concomitant]
  3. POTASSIUM CHLORIDE [Concomitant]
  4. DIGITEK [Concomitant]
  5. MACROBID [Concomitant]
  6. DARVOCET [Concomitant]
  7. LORTAB [Concomitant]
  8. CELEBREX [Concomitant]
  9. MAXZIDE [Concomitant]
  10. FOSAMAX [Concomitant]
  11. COREG [Concomitant]
  12. CRANBERRY SUPPLEMENT [Concomitant]
  13. VITAMINS (NOS) [Concomitant]

REACTIONS (15)
  - ANOREXIA [None]
  - ASTHENIA [None]
  - CHILLS [None]
  - EAR PAIN [None]
  - EJECTION FRACTION DECREASED [None]
  - HYPOKALAEMIA [None]
  - HYPOTENSION [None]
  - ILL-DEFINED DISORDER [None]
  - INFLUENZA LIKE ILLNESS [None]
  - MENTAL IMPAIRMENT [None]
  - MOVEMENT DISORDER [None]
  - PAIN [None]
  - PAROSMIA [None]
  - SOMNOLENCE [None]
  - TOOTH FRACTURE [None]
